FAERS Safety Report 5488009-0 (Version None)
Quarter: 2007Q4

REPORT INFORMATION
  Report Type: 
  Country: None (occurrence: None)
  Receive Date: 20071012
  Receipt Date: 20071012
  Transmission Date: 20080405
  Serious: Yes (Other)
  Sender: FDA-Public Use
  Company Number: None

PATIENT
  Sex: Female
  Weight: 74.8435 kg

DRUGS (1)
  1. OMEPRAZOLE 20MG SANDEZ [Suspect]
     Indication: GASTROOESOPHAGEAL REFLUX DISEASE
     Dosage: 20 MG 1 PER DAY PO
     Route: 048
     Dates: start: 20070824, end: 20071007

REACTIONS (5)
  - DIZZINESS [None]
  - FEELING HOT [None]
  - HEART RATE IRREGULAR [None]
  - NAUSEA [None]
  - PULSE PRESSURE DECREASED [None]
